FAERS Safety Report 4581771-0 (Version None)
Quarter: 2005Q1

REPORT INFORMATION
  Report Type: 
  Country: None (occurrence: None)
  Receive Date: 20050214
  Receipt Date: 20040301
  Transmission Date: 20050727
  Serious: No
  Sender: FDA-Public Use
  Company Number: US-GLAXOSMITHKLINE-A0500654A

PATIENT
  Sex: Female

DRUGS (3)
  1. LAMICTAL [Suspect]
     Indication: EPILEPSY
     Route: 048
  2. THYROID REPLACEMENT [Concomitant]
  3. ANTIBIOTICS [Concomitant]

REACTIONS (3)
  - ANTICONVULSANT DRUG LEVEL ABOVE THERAPEUTIC [None]
  - DIZZINESS [None]
  - MEMORY IMPAIRMENT [None]
